FAERS Safety Report 8563855 (Version 7)
Quarter: 2012Q4

REPORT INFORMATION
  Report Type: 
  Country: GB (occurrence: GB)
  Receive Date: 20120515
  Receipt Date: 20120830
  Transmission Date: 20130627
  Serious: Yes (Other)
  Sender: FDA-Public Use
  Company Number: GB-BAYER-2012-046212

PATIENT
  Age: 44 Year
  Sex: Female

DRUGS (4)
  1. BETAFERON [Suspect]
     Indication: MULTIPLE SCLEROSIS
     Dosage: UNK
     Route: 058
     Dates: end: 20120509
  2. BETAFERON [Suspect]
     Indication: MULTIPLE SCLEROSIS
     Dosage: 250 ?g, QOD
     Route: 058
     Dates: start: 201207, end: 20120809
  3. TRAZODONE [Concomitant]
     Indication: DEPRESSION
     Dosage: UNK
     Dates: start: 201203
  4. TRAZODONE [Concomitant]
     Indication: ANXIETY
     Dosage: 100 mg, UNK
     Dates: start: 20120511

REACTIONS (10)
  - Depression [Recovering/Resolving]
  - Hallucination [Recovered/Resolved]
  - Hallucination, auditory [Recovered/Resolved]
  - Schizophreniform disorder [Recovered/Resolved]
  - Paranoia [Recovered/Resolved]
  - Agitation [Recovered/Resolved]
  - Anxiety [Recovering/Resolving]
  - Obsessive-compulsive disorder [Recovering/Resolving]
  - Fatigue [None]
  - Influenza like illness [Recovered/Resolved]
